FAERS Safety Report 9770377 (Version 1)
Quarter: 2013Q4

REPORT INFORMATION
  Report Type: Report from Study
  Country: CA (occurrence: CA)
  Receive Date: 20131218
  Receipt Date: 20131218
  Transmission Date: 20140711
  Serious: Yes (Other)
  Sender: FDA-Public Use
  Company Number: CA-JNJFOC-20131208753

PATIENT
  Sex: Male
  Weight: 72.1 kg

DRUGS (5)
  1. REMICADE [Suspect]
     Indication: RHEUMATOID ARTHRITIS
     Route: 042
     Dates: start: 20130726
  2. METHOTREXATE [Concomitant]
     Route: 058
  3. PREDNISONE [Concomitant]
     Route: 048
  4. PLAQUENIL [Concomitant]
     Route: 048
  5. LEUCOVORIN [Concomitant]
     Dosage: A DAY AFTER METHOTREXATE
     Route: 048

REACTIONS (2)
  - Major depression [Unknown]
  - Drug ineffective [Unknown]
